FAERS Safety Report 6933776-X (Version None)
Quarter: 2010Q3

REPORT INFORMATION
  Report Type: 
  Country: None (occurrence: None)
  Receive Date: 20100820
  Receipt Date: 20100809
  Transmission Date: 20110219
  Serious: Yes (Other)
  Sender: FDA-Public Use
  Company Number: US-PFIZER INC-2008067684

PATIENT
  Sex: Female
  Weight: 165.53 kg

DRUGS (13)
  1. NEURONTIN [Suspect]
     Indication: NEUROPATHY PERIPHERAL
     Dosage: 600 MG, 3X/DAY
     Route: 048
     Dates: start: 19950101
  2. LYRICA [Suspect]
     Indication: FIBROMYALGIA
     Dosage: 150 MG, 3X/DAY
     Route: 048
     Dates: start: 20080301, end: 20080615
  3. DIOVAN HCT [Concomitant]
     Dosage: 160/12.5 MG
     Route: 048
  4. TOPROL-XL [Concomitant]
     Route: 048
  5. BENTYL [Concomitant]
     Dosage: UNK
     Route: 048
  6. EFFEXOR [Concomitant]
     Dosage: 150 MG, UNK
     Route: 048
  7. ZANAFLEX [Concomitant]
     Dosage: 4 MG, UNK
     Route: 048
  8. XANAX [Concomitant]
     Dosage: UNK
  9. CHOLESTYRAMINE RESIN [Concomitant]
     Dosage: UNK
  10. METOPROLOL [Concomitant]
     Indication: HYPERTENSION
     Dosage: 50 MG, DAILY
  11. ENALAPRIL MALEATE AND HYDROCHLOROTHIAZIDE [Concomitant]
     Indication: HYPERTENSION
     Dosage: 5/12.5 MG, DAILY
  12. METHADONE [Concomitant]
     Indication: PAIN
     Dosage: UNK, EVERY EIGHT HOURS
  13. OXYCODONE [Concomitant]
     Indication: PAIN
     Dosage: UNK, AS NEEDED

REACTIONS (12)
  - ARTHRALGIA [None]
  - CHEST PAIN [None]
  - FATIGUE [None]
  - FIBROMYALGIA [None]
  - HYPERSOMNIA [None]
  - MUSCULAR WEAKNESS [None]
  - NECK PAIN [None]
  - PAIN [None]
  - PAIN IN EXTREMITY [None]
  - VISION BLURRED [None]
  - WEIGHT DECREASED [None]
  - WEIGHT INCREASED [None]
